FAERS Safety Report 6384022-X (Version None)
Quarter: 2009Q4

REPORT INFORMATION
  Report Type: 
  Country: None (occurrence: None)
  Receive Date: 20091001
  Receipt Date: 20090918
  Transmission Date: 20100525
  Serious: Yes (Death, Other)
  Sender: FDA-Public Use
  Company Number: US-PFIZER INC-2009232960

PATIENT
  Age: 35 Year
  Sex: Male

DRUGS (5)
  1. SERTRALINE HCL [Suspect]
     Dosage: UNK MG, 2X/DAY
  2. VENLAFAXINE [Suspect]
  3. TOPIRAMATE [Suspect]
  4. METHADONE [Suspect]
     Indication: PAIN
     Dosage: 10 MG, 2X/DAY
     Route: 048
  5. METHADONE [Suspect]
     Dosage: 10 MG, UNK
     Route: 048

REACTIONS (10)
  - ASPIRATION [None]
  - CIRCULATORY COLLAPSE [None]
  - COLLAPSE OF LUNG [None]
  - COMPLETED SUICIDE [None]
  - DRUG INTERACTION [None]
  - DRUG TOXICITY [None]
  - INTENTIONAL OVERDOSE [None]
  - LOSS OF CONSCIOUSNESS [None]
  - SEROTONIN SYNDROME [None]
  - SUICIDE ATTEMPT [None]
